FAERS Safety Report 22649996 (Version 1)
Quarter: 2023Q2

REPORT INFORMATION
  Report Type: Spontaneous
  Country: US (occurrence: US)
  Receive Date: 20230628
  Receipt Date: 20230628
  Transmission Date: 20230722
  Serious: Yes (Other)
  Sender: FDA-Public Use
  Company Number: US-ABBVIE-5307674

PATIENT
  Age: 87 Year
  Sex: Female

DRUGS (3)
  1. DURYSTA [Suspect]
     Active Substance: BIMATOPROST
     Indication: Open angle glaucoma
     Dosage: TIME INTERVAL: AS NECESSARY: FORM STRENGTH: 10 MICROGRAM, FREQUENCY: ONE DAY
     Route: 031
     Dates: start: 20211021, end: 20220328
  2. DORZOLAMIDE [Concomitant]
     Active Substance: DORZOLAMIDE
     Indication: Glaucoma
  3. TIMOLOL [Concomitant]
     Active Substance: TIMOLOL
     Indication: Glaucoma

REACTIONS (4)
  - Cystoid macular oedema [Not Recovered/Not Resolved]
  - Corneal decompensation [Not Recovered/Not Resolved]
  - Iritis [Not Recovered/Not Resolved]
  - Corneal oedema [Not Recovered/Not Resolved]

NARRATIVE: CASE EVENT DATE: 20220322
